FAERS Safety Report 10991438 (Version 2)
Quarter: 2015Q2

REPORT INFORMATION
  Report Type: Spontaneous
  Country: US (occurrence: US)
  Receive Date: 20150406
  Receipt Date: 20150619
  Transmission Date: 20150821
  Serious: No
  Sender: FDA-Public Use
  Company Number: US-B.I. PHARMACEUTICALS,INC./RIDGEFIELD-2015-BI-15931BP

PATIENT
  Age: 49 Year
  Sex: Female
  Weight: 47.63 kg

DRUGS (3)
  1. PERCOCET [Concomitant]
     Active Substance: ACETAMINOPHEN\OXYCODONE HYDROCHLORIDE
     Indication: BACK PAIN
     Dosage: DOSE PER APPLICATION: 10 MG / 325 MG; DAILY DOSE: 40 MG / 1300 MG
     Route: 048
  2. SOMA [Concomitant]
     Active Substance: CARISOPRODOL
     Indication: FIBROMYALGIA
     Dosage: 1400 MG
     Route: 048
  3. COMBIVENT [Suspect]
     Active Substance: ALBUTEROL SULFATE\IPRATROPIUM BROMIDE
     Indication: CHRONIC OBSTRUCTIVE PULMONARY DISEASE
     Dosage: DOSE PER APPLICATION: 20 MCG / 100 MCG; DAILY DOSE: 80 MCG / 400 MCG, SPRAY
     Route: 055

REACTIONS (2)
  - Productive cough [Not Recovered/Not Resolved]
  - Product quality issue [Not Recovered/Not Resolved]

NARRATIVE: CASE EVENT DATE: 201502
